FAERS Safety Report 8962897 (Version 9)
Quarter: 2014Q3

REPORT INFORMATION
  Report Type: Report from Study
  Country: BR (occurrence: BR)
  Receive Date: 20121213
  Receipt Date: 20140819
  Transmission Date: 20150326
  Serious: Yes (Hospitalization, Other)
  Sender: FDA-Public Use
  Company Number: BR-ROCHE-1097126

PATIENT
  Age: 54 Year
  Sex: Female
  Weight: 73 kg

DRUGS (13)
  1. PREDSIM [Concomitant]
     Active Substance: PREDNISOLONE
     Route: 065
  2. IBUPROFEN. [Concomitant]
     Active Substance: IBUPROFEN
  3. TRAMADOL [Concomitant]
     Active Substance: TRAMADOL
  4. TORSILAX [Concomitant]
     Active Substance: ACETAMINOPHEN\CAFFEINE\CARISOPRODOL\DICLOFENAC
  5. MABTHERA [Suspect]
     Active Substance: RITUXIMAB
     Route: 042
     Dates: start: 201402, end: 201402
  6. MABTHERA [Suspect]
     Active Substance: RITUXIMAB
     Route: 042
     Dates: start: 201209
  7. PARACETAMOL [Concomitant]
     Active Substance: ACETAMINOPHEN
  8. MABTHERA [Suspect]
     Active Substance: RITUXIMAB
     Indication: RHEUMATOID ARTHRITIS
     Dosage: MOST RECENT DOSE 08/FEB/2014
     Route: 042
     Dates: start: 20120310
  9. METHOTREXATE [Concomitant]
     Active Substance: METHOTREXATE
  10. MELOXICAM. [Concomitant]
     Active Substance: MELOXICAM
     Route: 065
  11. OMEPRAZOLE. [Concomitant]
     Active Substance: OMEPRAZOLE
  12. MABTHERA [Suspect]
     Active Substance: RITUXIMAB
     Route: 042
     Dates: start: 201303
  13. PIROXICAM. [Concomitant]
     Active Substance: PIROXICAM

REACTIONS (16)
  - Gastritis [Unknown]
  - Fatigue [Recovered/Resolved]
  - Urinary tract infection [Recovering/Resolving]
  - Arthropathy [Not Recovered/Not Resolved]
  - Red blood cell sedimentation rate abnormal [Recovered/Resolved]
  - Drug ineffective [Unknown]
  - Depressed mood [Recovered/Resolved]
  - Tendonitis [Recovered/Resolved]
  - Arthritis [Not Recovered/Not Resolved]
  - Pain [Recovered/Resolved]
  - Intervertebral disc protrusion [Not Recovered/Not Resolved]
  - Pain in extremity [Not Recovered/Not Resolved]
  - Malaise [Recovered/Resolved]
  - Blood triglycerides abnormal [Recovering/Resolving]
  - Gait disturbance [Not Recovered/Not Resolved]
  - Limb asymmetry [Not Recovered/Not Resolved]

NARRATIVE: CASE EVENT DATE: 20140215
